FAERS Safety Report 25824045 (Version 1)
Quarter: 2025Q3

REPORT INFORMATION
  Report Type: Spontaneous
  Country: US (occurrence: US)
  Receive Date: 20250919
  Receipt Date: 20250919
  Transmission Date: 20251020
  Serious: Yes (Other)
  Sender: ALEXION PHARMACEUTICALS
  Company Number: US-ASTRAZENECA-202509GLO011050US

PATIENT
  Sex: Male

DRUGS (10)
  1. NEXIUM [Suspect]
     Active Substance: ESOMEPRAZOLE MAGNESIUM
  2. IBUPROFEN [Concomitant]
     Active Substance: IBUPROFEN
  3. MECLIZINE [Concomitant]
     Active Substance: MECLIZINE HYDROCHLORIDE
  4. EDEX [Concomitant]
     Active Substance: ALPROSTADIL
  5. VIAGRA [Concomitant]
     Active Substance: SILDENAFIL CITRATE
  6. FLONASE [Concomitant]
     Active Substance: FLUTICASONE PROPIONATE
  7. ATORVASTATIN [Concomitant]
     Active Substance: ATORVASTATIN
  8. BUPROPION [Concomitant]
     Active Substance: BUPROPION
  9. SERTRALINE [Concomitant]
     Active Substance: SERTRALINE HYDROCHLORIDE
  10. FINASTERIDE [Concomitant]
     Active Substance: FINASTERIDE

REACTIONS (1)
  - Gastric cancer [Unknown]
